FAERS Safety Report 18413319 (Version 1)
Quarter: 2020Q4

REPORT INFORMATION
  Report Type: Report from Study
  Country: US (occurrence: US)
  Receive Date: 20201021
  Receipt Date: 20201021
  Transmission Date: 20210114
  Serious: Yes (Hospitalization, Other)
  Sender: FDA-Public Use
  Company Number: US-BEH-2020121633

PATIENT
  Age: 61 Year
  Sex: Female
  Weight: 145.13 kg

DRUGS (8)
  1. HIZENTRA [Suspect]
     Active Substance: HUMAN IMMUNOGLOBULIN G
     Dosage: 0.4 GRAM PER KILOGRAM
     Route: 058
     Dates: start: 20200721
  2. BENADRYL [Concomitant]
     Active Substance: DIPHENHYDRAMINE HYDROCHLORIDE
     Indication: PREMEDICATION
  3. BENADRYL [Suspect]
     Active Substance: DIPHENHYDRAMINE HYDROCHLORIDE
  4. HIZENTRA [Suspect]
     Active Substance: HUMAN IMMUNOGLOBULIN G
     Indication: CHRONIC INFLAMMATORY DEMYELINATING POLYRADICULONEUROPATHY
     Dosage: 15 GRAM, BIW
     Route: 058
     Dates: start: 20200817
  5. HIZENTRA [Suspect]
     Active Substance: HUMAN IMMUNOGLOBULIN G
     Dosage: 15 GRAM, QW
     Route: 058
     Dates: start: 20200721
  6. HIZENTRA [Suspect]
     Active Substance: HUMAN IMMUNOGLOBULIN G
     Dosage: 0.4 GRAM PER KILOGRAM
     Route: 058
     Dates: start: 20200717
  7. TYLENOL [Concomitant]
     Active Substance: ACETAMINOPHEN
     Indication: PREMEDICATION
  8. HIZENTRA [Suspect]
     Active Substance: HUMAN IMMUNOGLOBULIN G
     Dosage: 15 GRAM, BIW
     Route: 058
     Dates: start: 202009

REACTIONS (9)
  - Somnolence [Not Recovered/Not Resolved]
  - Culture positive [Recovering/Resolving]
  - No adverse event [Unknown]
  - Muscular weakness [Not Recovered/Not Resolved]
  - Peroneal nerve palsy [Not Recovered/Not Resolved]
  - Neuralgia [Not Recovered/Not Resolved]
  - Hip arthroplasty [Unknown]
  - Transfusion [Unknown]
  - Therapy interrupted [Unknown]

NARRATIVE: CASE EVENT DATE: 20200817
